FAERS Safety Report 20664605 (Version 1)
Quarter: 2022Q2

REPORT INFORMATION
  Report Type: Spontaneous
  Country: US (occurrence: US)
  Receive Date: 20220401
  Receipt Date: 20220401
  Transmission Date: 20220721
  Serious: Yes (Other)
  Sender: FDA-Public Use
  Company Number: US-PFIZER INC-202200468174

PATIENT
  Age: 91 Year
  Sex: Male
  Weight: 63.5 kg

DRUGS (5)
  1. ACCURETIC [Suspect]
     Active Substance: HYDROCHLOROTHIAZIDE\QUINAPRIL HYDROCHLORIDE
     Dosage: UNK
     Dates: end: 2022
  2. HYDROCHLOROTHIAZIDE\QUINAPRIL HYDROCHLORIDE [Suspect]
     Active Substance: HYDROCHLOROTHIAZIDE\QUINAPRIL HYDROCHLORIDE
     Dosage: UNK
     Dates: end: 2022
  3. QUINAPRIL [Suspect]
     Active Substance: QUINAPRIL
     Dosage: 1 DF, 3X/DAY (ONE TABLET THREE TIMES A DAY)
     Dates: end: 2022
  4. HYDROCHLOROTHIAZIDE [Suspect]
     Active Substance: HYDROCHLOROTHIAZIDE
     Dosage: UNK
     Dates: end: 2022
  5. FUROSEMIDE SODIUM [Concomitant]
     Active Substance: FUROSEMIDE SODIUM
     Dosage: UNK

REACTIONS (1)
  - Renal cell carcinoma [Unknown]
